FAERS Safety Report 9476506 (Version 2)
Quarter: 2013Q3

REPORT INFORMATION
  Report Type: Report from Study
  Country: CN (occurrence: CN)
  Receive Date: 20130826
  Receipt Date: 20130903
  Transmission Date: 20140515
  Serious: Yes (Death)
  Sender: FDA-Public Use
  Company Number: CN-PFIZER INC-2013242781

PATIENT
  Age: 63 Year
  Sex: Male

DRUGS (13)
  1. DOXORUBICIN HCL [Suspect]
  2. BLEOMYCIN [Suspect]
     Indication: NON-HODGKIN^S LYMPHOMA
  3. BLEOMYCIN [Suspect]
     Indication: CHRONIC LYMPHOCYTIC LEUKAEMIA
  4. BLEOMYCIN [Suspect]
     Indication: LYMPHOMA
  5. CYCLOPHOSPHAMIDE [Suspect]
     Indication: NON-HODGKIN^S LYMPHOMA
  6. CYCLOPHOSPHAMIDE [Suspect]
     Indication: CHRONIC LYMPHOCYTIC LEUKAEMIA
  7. CYCLOPHOSPHAMIDE [Suspect]
     Indication: LYMPHOMA
  8. ONCOVIN [Suspect]
     Indication: NON-HODGKIN^S LYMPHOMA
  9. ONCOVIN [Suspect]
     Indication: CHRONIC LYMPHOCYTIC LEUKAEMIA
  10. ONCOVIN [Suspect]
     Indication: LYMPHOMA
  11. PREDNISONE [Suspect]
     Indication: NON-HODGKIN^S LYMPHOMA
  12. PREDNISONE [Suspect]
     Indication: CHRONIC LYMPHOCYTIC LEUKAEMIA
  13. PREDNISONE [Suspect]
     Indication: LYMPHOMA

REACTIONS (1)
  - Pulmonary toxicity [Fatal]
